FAERS Safety Report 15044043 (Version 3)
Quarter: 2018Q3

REPORT INFORMATION
  Report Type: Report from Study
  Country: CA (occurrence: CA)
  Receive Date: 20180621
  Receipt Date: 20180703
  Transmission Date: 20181010
  Serious: Yes (Hospitalization, Other)
  Sender: FDA-Public Use
  Company Number: CA-GLAXOSMITHKLINE-CA2018GSK094309

PATIENT
  Sex: Female

DRUGS (1)
  1. SALBUTAMOL SULPHATE [Suspect]
     Active Substance: ALBUTEROL SULFATE
     Indication: PRODUCT USED FOR UNKNOWN INDICATION
     Dosage: UNK

REACTIONS (14)
  - Salivary hypersecretion [Unknown]
  - Pain [Unknown]
  - Cough [Unknown]
  - Joint dislocation [Unknown]
  - Upper limb fracture [Not Recovered/Not Resolved]
  - Malaise [Unknown]
  - Productive cough [Not Recovered/Not Resolved]
  - Root canal infection [Unknown]
  - Bronchitis [Unknown]
  - Fall [Unknown]
  - Humerus fracture [Unknown]
  - Respiratory tract congestion [Unknown]
  - Lung infection [Unknown]
  - Sputum discoloured [Unknown]
